FAERS Safety Report 20482160 (Version 2)
Quarter: 2022Q1

REPORT INFORMATION
  Report Type: Report from Study
  Country: CA (occurrence: CA)
  Receive Date: 20220216
  Receipt Date: 20220308
  Transmission Date: 20220424
  Serious: Yes (Death, Hospitalization, Other)
  Sender: FDA-Public Use
  Company Number: CA-JNJFOC-20200210370

PATIENT
  Age: 75 Year
  Sex: Male

DRUGS (2)
  1. IMBRUVICA [Suspect]
     Active Substance: IBRUTINIB
     Indication: Chronic lymphocytic leukaemia
     Dosage: STRENGTH  140 MG
     Route: 048
     Dates: start: 20190125, end: 20220105
  2. RAMIPRIL [Concomitant]
     Active Substance: RAMIPRIL
     Indication: Product used for unknown indication

REACTIONS (9)
  - Death [Fatal]
  - Lung neoplasm [Recovering/Resolving]
  - COVID-19 pneumonia [Recovering/Resolving]
  - Rhinorrhoea [Unknown]
  - Chest discomfort [Unknown]
  - Surgery [Unknown]
  - Biopsy [Unknown]
  - Cough [Not Recovered/Not Resolved]
  - Dyspnoea [Unknown]

NARRATIVE: CASE EVENT DATE: 20190901
